FAERS Safety Report 8456969-1 (Version None)
Quarter: 2012Q2

REPORT INFORMATION
  Report Type: 
  Country: None (occurrence: None)
  Receive Date: 20120621
  Receipt Date: 20120604
  Transmission Date: 20120825
  Serious: No
  Sender: FDA-Public Use
  Company Number: US-BAYER-2012-056470

PATIENT
  Age: 34 Year

DRUGS (3)
  1. ASPIRIN [Suspect]
     Indication: ARTHRITIS
     Route: 048
  2. MOTRIN [Concomitant]
     Route: 048
  3. ALEVE (CAPLET) [Suspect]
     Indication: DYSMENORRHOEA
     Route: 048

REACTIONS (1)
  - PAIN [None]
